FAERS Safety Report 5838708-3 (Version None)
Quarter: 2008Q3

REPORT INFORMATION
  Report Type: 
  Country: None (occurrence: None)
  Receive Date: 20080808
  Receipt Date: 20080804
  Transmission Date: 20090109
  Serious: Yes (Life-Threatening, Other)
  Sender: FDA-Public Use
  Company Number: B0529924A

PATIENT
  Age: 12 Year
  Sex: Female

DRUGS (3)
  1. CARVEDILOL [Suspect]
     Indication: CARDIAC FAILURE
     Route: 065
  2. AMIODARONE HCL [Concomitant]
  3. MILRINONE LACTATE [Concomitant]

REACTIONS (3)
  - CARDIAC FAILURE [None]
  - CONDITION AGGRAVATED [None]
  - VENTRICULAR TACHYCARDIA [None]
